FAERS Safety Report 9721586 (Version 1)
Quarter: 2013Q4

REPORT INFORMATION
  Report Type: Spontaneous
  Country: US (occurrence: US)
  Receive Date: 20131201
  Receipt Date: 20131201
  Transmission Date: 20140711
  Serious: No
  Sender: FDA-Public Use
  Company Number: US-009507513-1311USA012045

PATIENT
  Age: 57 Year
  Sex: Female

DRUGS (4)
  1. AZASITE [Suspect]
     Indication: OCULAR ROSACEA
     Dosage: ONE DROP OF AZASITE ONTO HER FINGER AND THEN RUBS THE AZASITE ON BOTH OF HER EYELIDS TWICE DAILY
  2. AZASITE [Suspect]
     Dosage: UNK
     Dates: start: 201311
  3. METROGYL [Concomitant]
  4. AZITHROMYCIN [Concomitant]

REACTIONS (1)
  - Post thrombotic syndrome [Recovering/Resolving]
